FAERS Safety Report 22308394 (Version 1)
Quarter: 2023Q2

REPORT INFORMATION
  Report Type: Spontaneous
  Country: US (occurrence: None)
  Receive Date: 20230511
  Receipt Date: 20230511
  Transmission Date: 20230721
  Serious: No
  Sender: FDA-Public Use
  Company Number: US-ROCHE-3243322

PATIENT
  Sex: Female

DRUGS (1)
  1. OCREVUS [Suspect]
     Active Substance: OCRELIZUMAB
     Indication: Product used for unknown indication
     Dosage: DURING 1ST 300MG DOSE OF OCREVUS IV, PATIENT HAD C/O ITCHING AND SWELLING OF THROAT ;ONGOING: YES
     Route: 042
     Dates: start: 20221118

REACTIONS (2)
  - Pruritus [Recovered/Resolved]
  - Pharyngeal swelling [Recovered/Resolved]

NARRATIVE: CASE EVENT DATE: 20221118
